FAERS Safety Report 5263995-2 (Version None)
Quarter: 2007Q1

REPORT INFORMATION
  Report Type: 
  Country: None (occurrence: None)
  Receive Date: 20061213
  Receipt Date: 20060410
  Transmission Date: 20070707
  Serious: Yes (Other)
  Sender: FDA-Public Use
  Company Number: 2006UW04526

PATIENT
  Age: 71 Year
  Sex: Female
  Weight: 63.9572 kg

DRUGS (3)
  1. IRESSA [Suspect]
     Indication: LUNG NEOPLASM MALIGNANT
     Dosage: 150 MG PO
     Route: 048
     Dates: end: 20051101
  2. XANAX [Concomitant]
  3. IBUPROFEN [Concomitant]

REACTIONS (2)
  - CONJUNCTIVAL IRRITATION [None]
  - MUCOSAL INFLAMMATION [None]
